FAERS Safety Report 11057455 (Version 2)
Quarter: 2015Q2

REPORT INFORMATION
  Report Type: Spontaneous
  Country: FR (occurrence: FR)
  Receive Date: 20150422
  Receipt Date: 20150428
  Transmission Date: 20150821
  Serious: Yes (Life-Threatening, Other)
  Sender: FDA-Public Use
  Company Number: FR-009507513-1504FRA018821

PATIENT
  Age: 78 Year
  Sex: Female
  Weight: 52 kg

DRUGS (6)
  1. ALPRAZOLAM. [Concomitant]
     Active Substance: ALPRAZOLAM
     Dosage: 0.5 DF, BID
     Route: 048
     Dates: start: 201306
  2. TRANSIPEG [Concomitant]
     Active Substance: POLYETHYLENE GLYCOL 3350
     Dosage: 1 DF, QD
     Route: 048
     Dates: start: 201306
  3. NORSET [Suspect]
     Active Substance: MIRTAZAPINE
     Dosage: 15 MG,EVERY EVENING
     Route: 048
     Dates: start: 201306
  4. DEPAKOTE [Concomitant]
     Active Substance: DIVALPROEX SODIUM
     Dosage: GASTRO-RESISTANR TABLET, 1 DF, BID
     Route: 048
     Dates: start: 201306
  5. THERALENE [Suspect]
     Active Substance: TRIMEPRAZINE
     Dosage: 5 GTT, EVERY EVENING
     Route: 048
     Dates: start: 201306
  6. IMOVANE [Concomitant]
     Active Substance: ZOPICLONE
     Dosage: 1 DF, EVERY EVENING
     Route: 048
     Dates: start: 201306

REACTIONS (1)
  - Epilepsy [Recovered/Resolved with Sequelae]

NARRATIVE: CASE EVENT DATE: 20150330
